FAERS Safety Report 8743536 (Version 2)
Quarter: 2012Q4

REPORT INFORMATION
  Report Type: Report from Study
  Country: DE (occurrence: DE)
  Receive Date: 20120824
  Receipt Date: 20120912
  Transmission Date: 20130627
  Serious: Yes (Hospitalization)
  Sender: FDA-Public Use
  Company Number: DE-ROCHE-1106592

PATIENT
  Age: 51 Year
  Sex: Female
  Weight: 93.4 kg

DRUGS (2)
  1. ZELBORAF [Suspect]
     Indication: MALIGNANT MELANOMA
     Dosage: Last dose prior to SAE:22 Aug 2012
     Route: 048
     Dates: start: 20120308
  2. SIMVAHEXAL [Concomitant]
     Route: 065
     Dates: start: 20120415

REACTIONS (1)
  - Uveitis [Recovering/Resolving]
